FAERS Safety Report 22904888 (Version 7)
Quarter: 2024Q1

REPORT INFORMATION
  Report Type: Spontaneous
  Country: JP (occurrence: JP)
  Receive Date: 20230905
  Receipt Date: 20240222
  Transmission Date: 20240410
  Serious: Yes (Hospitalization, Other)
  Sender: FDA-Public Use
  Company Number: JP-GSKJP-JP2023JPN118718

PATIENT
  Age: 36 Year
  Sex: Female

DRUGS (7)
  1. BOTOX [Suspect]
     Active Substance: ONABOTULINUMTOXINA
     Indication: Muscle spasticity
     Dosage: TIME INTERVAL: AS NECESSARY: 400 UNITS
     Route: 030
     Dates: start: 20230417, end: 20230417
  2. BOTOX [Suspect]
     Active Substance: ONABOTULINUMTOXINA
     Indication: Muscle spasticity
     Dosage: TIME INTERVAL: AS NECESSARY: 300 UNITS
     Route: 030
     Dates: start: 20221003, end: 20221003
  3. BOTOX [Suspect]
     Active Substance: ONABOTULINUMTOXINA
     Indication: Muscle spasticity
     Dosage: TIME INTERVAL: AS NECESSARY: 300 UNITS
     Route: 030
     Dates: start: 20230116, end: 20230116
  4. BOTOX [Suspect]
     Active Substance: ONABOTULINUMTOXINA
     Indication: Muscle spasticity
     Dosage: TIME INTERVAL: AS NECESSARY: 400 UNITS
     Route: 030
     Dates: start: 20231120, end: 20231120
  5. LOXOPROFEN SODIUM [Concomitant]
     Active Substance: LOXOPROFEN SODIUM
     Indication: Headache
     Dosage: TIME INTERVAL: AS NECESSARY: 60 MG, PRN AT THE TIME OF HEADACHE
     Route: 048
  6. LEVETIRACETAM [Concomitant]
     Active Substance: LEVETIRACETAM
     Indication: Seizure prophylaxis
     Dosage: 500 MG, BID AFTER BREAKFAST AND DINNER
     Route: 048
  7. LANSOPRAZOLE [Concomitant]
     Active Substance: LANSOPRAZOLE
     Indication: Product used for unknown indication
     Dosage: 15 MG, 1D AFTER DINNER, OD?LANSOPRAZOLE-OD TABLETS
     Route: 048

REACTIONS (3)
  - Cerebral haemorrhage [Unknown]
  - Headache [Unknown]
  - Dysphoria [Unknown]

NARRATIVE: CASE EVENT DATE: 20230829
